FAERS Safety Report 19433385 (Version 1)
Quarter: 2021Q2

REPORT INFORMATION
  Report Type: Report from Study
  Country: US (occurrence: US)
  Receive Date: 20210617
  Receipt Date: 20210617
  Transmission Date: 20210717
  Serious: Yes (Hospitalization)
  Sender: FDA-Public Use
  Company Number: US-PFIZER INC-2021625554

PATIENT
  Age: 4 Year
  Sex: Female
  Weight: 15.5 kg

DRUGS (7)
  1. SULFAMETHOXAZOLE/TRIMETHOPRIM [Concomitant]
     Active Substance: SULFAMETHOXAZOLE\TRIMETHOPRIM
     Indication: ANTIBIOTIC PROPHYLAXIS
     Dosage: 40 MG, 2X/DAY (BID)
     Route: 048
     Dates: start: 20200420
  2. CHOLECALCIFEROL [Concomitant]
     Active Substance: CHOLECALCIFEROL
     Indication: VITAMIN D DECREASED
     Dosage: 400 IU, 1X/DAY (QD)
     Route: 048
     Dates: start: 20201210
  3. PEGFILGRASTIM [Concomitant]
     Active Substance: PEGFILGRASTIM
     Indication: WHITE BLOOD CELL DISORDER
     Dosage: 0.2 ML, AS NEEDED (PRN)
     Route: 048
     Dates: start: 20201107
  4. TOPOTECAN [Suspect]
     Active Substance: TOPOTECAN HYDROCHLORIDE
     Indication: NEUROBLASTOMA
     Dosage: 0.48 MG, CYCLIC ( ONCE DAILY ON DAY 1?5 OF 21 DAY CYCLE)
     Route: 041
     Dates: start: 20210518, end: 20210522
  5. GRANISETRON [Concomitant]
     Active Substance: GRANISETRON
     Indication: NAUSEA
     Dosage: 0.3 MG, AS NEEDED (PRN)
     Route: 042
     Dates: start: 20201102
  6. PALBOCICLIB [Suspect]
     Active Substance: PALBOCICLIB
     Indication: NEUROBLASTOMA
     Dosage: 55 MG, CYCLIC (ONCE DAILY ON DAYS 1?14 OF 21 DAY CYCLE)
     Route: 048
     Dates: start: 20210518, end: 20210528
  7. CYCLOPHOSPHAMIDE. [Suspect]
     Active Substance: CYCLOPHOSPHAMIDE
     Indication: NEUROBLASTOMA
     Dosage: 162 MG, CYCLIC (ONCE DAILY ON DAYS 1?5 OF 21 DAY CYCLE)
     Route: 041
     Dates: start: 20210518, end: 20210522

REACTIONS (3)
  - Sinus tachycardia [Recovering/Resolving]
  - Neutropenia [Recovering/Resolving]
  - Febrile neutropenia [Recovering/Resolving]

NARRATIVE: CASE EVENT DATE: 20210527
